FAERS Safety Report 10758045 (Version 1)
Quarter: 2015Q1

REPORT INFORMATION
  Report Type: Spontaneous
  Country: US (occurrence: None)
  Receive Date: 20150202
  Receipt Date: 20150202
  Transmission Date: 20150721
  Serious: Yes (Hospitalization, Disabling)
  Sender: FDA-Public Use
  Company Number: None

PATIENT
  Age: 60 Year
  Sex: Female
  Weight: 61.24 kg

DRUGS (1)
  1. SIMVASTATIN. [Suspect]
     Active Substance: SIMVASTATIN
     Indication: BLOOD CHOLESTEROL INCREASED
     Dosage: 1 PILL
     Route: 048
     Dates: start: 20101201, end: 20120717

REACTIONS (6)
  - Spinal pain [None]
  - Spinal fusion surgery [None]
  - Rotator cuff syndrome [None]
  - Pain [None]
  - Shoulder arthroplasty [None]
  - Weight decreased [None]

NARRATIVE: CASE EVENT DATE: 2013
